FAERS Safety Report 9587330 (Version 1)
Quarter: 2013Q4

REPORT INFORMATION
  Report Type: Report from Study
  Country: US (occurrence: US)
  Receive Date: 20131003
  Receipt Date: 20131003
  Transmission Date: 20140711
  Serious: Yes (Other)
  Sender: FDA-Public Use
  Company Number: US-JNJFOC-20130915827

PATIENT
  Age: 70 Year
  Sex: Male
  Weight: 58.06 kg

DRUGS (1)
  1. REMICADE [Suspect]
     Indication: RHEUMATOID ARTHRITIS
     Route: 042
     Dates: start: 201212, end: 20130727

REACTIONS (2)
  - Sinus disorder [Recovered/Resolved]
  - Sinusitis [Recovered/Resolved]
